FAERS Safety Report 4685394-4 (Version None)
Quarter: 2005Q2

REPORT INFORMATION
  Report Type: 
  Country: None (occurrence: None)
  Receive Date: 20050608
  Receipt Date: 20050516
  Transmission Date: 20051028
  Serious: Yes (Hospitalization)
  Sender: FDA-Public Use
  Company Number: JP-GLAXOSMITHKLINE-B0381190A

PATIENT
  Age: 57 Year
  Sex: Male
  Weight: 50 kg

DRUGS (9)
  1. VALTREX [Suspect]
     Indication: HERPES ZOSTER
     Dosage: 1000MG THREE TIMES PER DAY
     Route: 048
     Dates: start: 20050507, end: 20050513
  2. CALTAN [Concomitant]
     Route: 048
  3. EBASTEL [Concomitant]
     Route: 048
  4. METHYCOBIDE [Concomitant]
     Route: 048
  5. ALFASULY [Concomitant]
     Route: 048
  6. TINELAC [Concomitant]
     Route: 048
  7. CEREGASRON [Concomitant]
     Route: 048
  8. LENDORM [Concomitant]
     Indication: INSOMNIA
     Dosage: .25MG PER DAY
     Route: 048
     Dates: start: 20050511, end: 20050512
  9. SYLLABLE [Concomitant]
     Route: 048

REACTIONS (8)
  - ABNORMAL BEHAVIOUR [None]
  - DELIRIUM [None]
  - DYSARTHRIA [None]
  - INSOMNIA [None]
  - PALPITATIONS [None]
  - RENAL IMPAIRMENT [None]
  - RESTLESSNESS [None]
  - TINNITUS [None]
